FAERS Safety Report 23961421 (Version 1)
Quarter: 2024Q2

REPORT INFORMATION
  Report Type: Spontaneous
  Country: FR (occurrence: FR)
  Receive Date: 20240611
  Receipt Date: 20240611
  Transmission Date: 20240716
  Serious: Yes (Hospitalization)
  Sender: FDA-Public Use
  Company Number: None

PATIENT
  Age: 2 Year
  Sex: Male
  Weight: 13 kg

DRUGS (1)
  1. TEGRETOL [Suspect]
     Active Substance: CARBAMAZEPINE
     Indication: Product prescribing error
     Dosage: 800 MG, ONCE/SINGLE
     Route: 048
     Dates: start: 20240521, end: 20240522

REACTIONS (3)
  - Altered state of consciousness [Recovered/Resolved]
  - Product prescribing error [Recovered/Resolved]
  - Product name confusion [Recovered/Resolved]

NARRATIVE: CASE EVENT DATE: 20240521
